FAERS Safety Report 8406188-X (Version None)
Quarter: 2012Q2

REPORT INFORMATION
  Report Type: 
  Country: None (occurrence: None)
  Receive Date: 20120604
  Receipt Date: 20120525
  Transmission Date: 20120825
  Serious: Yes (Hospitalization)
  Sender: FDA-Public Use
  Company Number: US-BAYER-2011-112056

PATIENT
  Age: 37 Year
  Sex: Female
  Weight: 56.689 kg

DRUGS (17)
  1. CANASA [Concomitant]
     Dosage: 1000 MG, UNK
     Dates: start: 20090915
  2. PREDNISONE [Concomitant]
     Dosage: 10 MG, UNK
     Dates: start: 20090920
  3. I.V. SOLUTIONS [Concomitant]
  4. YAZ [Suspect]
     Indication: PREMENSTRUAL SYNDROME
  5. FLAGYL [Concomitant]
  6. IV STEROIDS [Concomitant]
  7. CITALOPRAM [Concomitant]
     Dosage: 20 MG, UNK
     Dates: start: 20090908
  8. CHERATUSSIN AC [Concomitant]
     Dosage: UNK
     Dates: start: 20090927
  9. M.V.I. [Concomitant]
     Dosage: UNK
     Dates: start: 20091001
  10. ZOLOFT [Concomitant]
     Indication: ANXIETY
     Dosage: UNK
     Dates: start: 20071201, end: 20091001
  11. ORAL STEROIDS [Concomitant]
     Route: 048
  12. CELEXA [Concomitant]
  13. YAZ [Suspect]
     Indication: CONTRACEPTION
     Dosage: UNK
     Dates: start: 20080101, end: 20091001
  14. ENTOCORT EC [Concomitant]
     Indication: COLITIS
     Dosage: 3 MG, TID
     Dates: start: 20090801, end: 20100201
  15. LORTAB [Concomitant]
     Indication: CHEST DISCOMFORT
  16. LIALDA [Concomitant]
     Dosage: 1.2 G, UNK
     Dates: start: 20090801, end: 20100201
  17. TUSSIONEX [Concomitant]
     Indication: COUGH

REACTIONS (5)
  - STRESS [None]
  - EMOTIONAL DISTRESS [None]
  - ANXIETY [None]
  - PULMONARY EMBOLISM [None]
  - PAIN [None]
